FAERS Safety Report 18677022 (Version 1)
Quarter: 2020Q4

REPORT INFORMATION
  Report Type: Spontaneous
  Country: NL (occurrence: NL)
  Receive Date: 20201229
  Receipt Date: 20201229
  Transmission Date: 20210114
  Serious: Yes (Other)
  Sender: FDA-Public Use
  Company Number: NL-MYLANLABS-2020M1104504

PATIENT
  Sex: Male
  Weight: 108 kg

DRUGS (2)
  1. TAMSULOSINE                        /01280301/ [Concomitant]
     Active Substance: TAMSULOSIN
     Dosage: 1X PER DAG
  2. FINASTERIDE. [Suspect]
     Active Substance: FINASTERIDE
     Indication: PRODUCT USED FOR UNKNOWN INDICATION
     Dosage: 1X PERDAG, 5 MG
     Dates: start: 201801, end: 20201103

REACTIONS (4)
  - Suicide attempt [Recovering/Resolving]
  - Depressed mood [Recovering/Resolving]
  - Loss of libido [Recovering/Resolving]
  - Peyronie^s disease [Recovering/Resolving]
